FAERS Safety Report 9063230 (Version 1)
Quarter: 2013Q1

REPORT INFORMATION
  Report Type: Spontaneous
  Country: BR (occurrence: BR)
  Receive Date: 20130213
  Receipt Date: 20130213
  Transmission Date: 20140127
  Serious: Yes (Hospitalization)
  Sender: FDA-Public Use
  Company Number: BR-GLAXOSMITHKLINE-A1011704A

PATIENT
  Age: 51 None
  Sex: Female
  Weight: 107 kg

DRUGS (5)
  1. ZINNAT [Suspect]
     Indication: DENGUE FEVER
     Route: 042
     Dates: start: 20130122
  2. ZINNAT [Suspect]
     Indication: BRONCHIAL DISORDER
     Dosage: 500MG TWICE PER DAY
     Route: 048
     Dates: start: 20130122, end: 20130123
  3. LEVOTHYROXINE SODIUM [Concomitant]
     Dates: start: 1985
  4. DIPYRONE [Concomitant]
     Dosage: 1TAB TWICE PER DAY
     Dates: start: 20130120, end: 20130203
  5. PARACETAMOL [Concomitant]
     Dosage: 1TAB FOUR TIMES PER DAY
     Route: 065
     Dates: start: 20130122

REACTIONS (13)
  - Vaginal haemorrhage [Recovering/Resolving]
  - Urethral pain [Recovering/Resolving]
  - Burning sensation [Recovering/Resolving]
  - Generalised oedema [Recovering/Resolving]
  - Oropharyngeal discomfort [Recovered/Resolved]
  - Erythema [Recovering/Resolving]
  - Vomiting [Recovering/Resolving]
  - Diarrhoea [Recovering/Resolving]
  - Paraesthesia [Recovering/Resolving]
  - C-reactive protein abnormal [Unknown]
  - Lung disorder [Unknown]
  - Syncope [Recovered/Resolved]
  - Nausea [Unknown]
